FAERS Safety Report 7617131-5 (Version None)
Quarter: 2011Q3

REPORT INFORMATION
  Report Type: 
  Country: None (occurrence: None)
  Receive Date: 20110718
  Receipt Date: 20110708
  Transmission Date: 20111222
  Serious: Yes (Other)
  Sender: FDA-Public Use
  Company Number: JP-JNJFOC-20110500332

PATIENT
  Sex: Female
  Weight: 39 kg

DRUGS (4)
  1. DOXIL [Suspect]
     Indication: OVARIAN CANCER
     Route: 042
     Dates: start: 20110222, end: 20110222
  2. PACLITAXEL [Suspect]
     Indication: OVARIAN CANCER
     Route: 042
     Dates: start: 20110222, end: 20110222
  3. PARAPLATIN [Suspect]
     Indication: OVARIAN CANCER
     Route: 042
     Dates: start: 20110222, end: 20110222
  4. ALOXI [Suspect]
     Indication: OVARIAN CANCER RECURRENT
     Route: 042
     Dates: start: 20110222, end: 20110222

REACTIONS (4)
  - RESPIRATORY ARREST [None]
  - PALLOR [None]
  - MUSCULOSKELETAL STIFFNESS [None]
  - INFUSION RELATED REACTION [None]
